FAERS Safety Report 16384475 (Version 3)
Quarter: 2020Q3

REPORT INFORMATION
  Report Type: Spontaneous
  Country: PT (occurrence: PT)
  Receive Date: 20190603
  Receipt Date: 20200901
  Transmission Date: 20201102
  Serious: Yes (Other)
  Sender: FDA-Public Use
  Company Number: PT-SA-2019SA150559

PATIENT

DRUGS (8)
  1. LEMTRADA [Suspect]
     Active Substance: ALEMTUZUMAB
     Indication: RELAPSING-REMITTING MULTIPLE SCLEROSIS
     Dosage: 12 MG, QD
     Route: 042
     Dates: start: 20190401, end: 20190406
  2. METHYLPREDNISOLONE. [Concomitant]
     Active Substance: METHYLPREDNISOLONE
     Indication: PREMEDICATION
     Route: 042
  3. COTRIMOXAZOLE [Concomitant]
     Active Substance: SULFAMETHOXAZOLE\TRIMETHOPRIM
     Dosage: 1 DF, TIW
     Route: 048
  4. PARACETAMOL [Concomitant]
     Active Substance: ACETAMINOPHEN
     Indication: PREMEDICATION
     Route: 048
  5. MOLINAR [Concomitant]
     Route: 048
  6. VALGANCICLOVIR. [Concomitant]
     Active Substance: VALGANCICLOVIR
     Route: 048
  7. TAVIST [CLEMASTINE FUMARATE] [Concomitant]
     Active Substance: CLEMASTINE FUMARATE
     Indication: PREMEDICATION
     Route: 042
  8. ACICLOVIR [Concomitant]
     Active Substance: ACYCLOVIR
     Dosage: 1 DF, Q12H
     Route: 048

REACTIONS (4)
  - Thyroxine decreased [Recovered/Resolved]
  - Lymphopenia [Recovered/Resolved]
  - Cytomegalovirus infection reactivation [Recovered/Resolved]
  - Rash macular [Recovered/Resolved]

NARRATIVE: CASE EVENT DATE: 20190401
